FAERS Safety Report 21877090 (Version 1)
Quarter: 2023Q1

REPORT INFORMATION
  Report Type: Spontaneous
  Country: US (occurrence: US)
  Receive Date: 20230118
  Receipt Date: 20230118
  Transmission Date: 20230417
  Serious: Yes (Other)
  Sender: FDA-Public Use
  Company Number: US-drreddys-LIT/USA/23/0159922

PATIENT
  Age: 23 Year
  Sex: Male

DRUGS (1)
  1. LORAZEPAM [Suspect]
     Active Substance: LORAZEPAM
     Indication: Serotonin syndrome

REACTIONS (1)
  - Drug ineffective for unapproved indication [Unknown]
